FAERS Safety Report 16867271 (Version 1)
Quarter: 2019Q3

REPORT INFORMATION
  Report Type: Spontaneous
  Country: US (occurrence: US)
  Receive Date: 20190930
  Receipt Date: 20190930
  Transmission Date: 20191005
  Serious: No
  Sender: FDA-Public Use
  Company Number: US-INDIVIOR LIMITED-INDV-120153-2019

PATIENT
  Sex: Female

DRUGS (4)
  1. SUBLOCADE [Suspect]
     Active Substance: BUPRENORPHINE
     Dosage: 300 MILLIGRAM, QMO (FOURTH, FIFTH AND SIXTH INJECTIONS)
     Route: 058
     Dates: start: 2019
  2. SUBLOCADE [Suspect]
     Active Substance: BUPRENORPHINE
     Indication: DRUG DEPENDENCE
     Dosage: 300 MILLIGRAM, QMO (FIRST AND SECOND INJECTIONS)
     Route: 058
     Dates: end: 2019
  3. SUBLOCADE [Suspect]
     Active Substance: BUPRENORPHINE
     Indication: DRUG DEPENDENCE
     Dosage: 100 MILLIGRAM, QMO (THIRD INJECTION)
     Route: 065
     Dates: start: 2019, end: 2019
  4. LIDOCAINE. [Concomitant]
     Active Substance: LIDOCAINE
     Indication: LOCAL ANAESTHESIA
     Dosage: UNK
     Route: 051

REACTIONS (1)
  - Drug withdrawal syndrome [Recovering/Resolving]

NARRATIVE: CASE EVENT DATE: 2019
